FAERS Safety Report 21840865 (Version 2)
Quarter: 2023Q1

REPORT INFORMATION
  Report Type: Spontaneous
  Country: US (occurrence: US)
  Receive Date: 20230110
  Receipt Date: 20230112
  Transmission Date: 20230417
  Serious: Yes (Death, Life-Threatening, Hospitalization)
  Sender: FDA-Public Use
  Company Number: US-ARGENX-2023-ARGX-US000071

PATIENT

DRUGS (2)
  1. VYVGART [Suspect]
     Active Substance: EFGARTIGIMOD ALFA-FCAB
     Indication: Myasthenia gravis
     Dosage: UNK
     Route: 042
     Dates: start: 20221122, end: 20221122
  2. VYVGART [Suspect]
     Active Substance: EFGARTIGIMOD ALFA-FCAB
     Dosage: UNK
     Route: 042
     Dates: start: 20221230, end: 20221230

REACTIONS (4)
  - Death [Fatal]
  - Mechanical ventilation [Recovered/Resolved]
  - Malaise [Unknown]
  - Inappropriate schedule of product administration [Unknown]

NARRATIVE: CASE EVENT DATE: 20221201
